FAERS Safety Report 12489043 (Version 1)
Quarter: 2016Q2

REPORT INFORMATION
  Report Type: Spontaneous
  Country: BE (occurrence: BE)
  Receive Date: 20160622
  Receipt Date: 20160622
  Transmission Date: 20160815
  Serious: Yes (Hospitalization)
  Sender: FDA-Public Use
  Company Number: BE-SA-2016SA109003

PATIENT
  Age: 69 Year
  Sex: Male
  Weight: 91 kg

DRUGS (9)
  1. AMINOPYRIDINE [Concomitant]
     Active Substance: DALFAMPRIDINE
  2. METFORMAX [Concomitant]
     Active Substance: METFORMIN HYDROCHLORIDE
  3. INEGY [Concomitant]
     Active Substance: EZETIMIBE\SIMVASTATIN
     Dosage: 10/20 MG
  4. SOTALEX [Concomitant]
     Active Substance: SOTALOL
     Dosage: 160 MG
  5. AUBAGIO [Suspect]
     Active Substance: TERIFLUNOMIDE
     Indication: MULTIPLE SCLEROSIS
     Route: 048
     Dates: start: 20160503, end: 20160601
  6. SPASMOMEN [Concomitant]
  7. ELIQUIS [Concomitant]
     Active Substance: APIXABAN
  8. COMBODART [Concomitant]
     Active Substance: DUTASTERIDE\TAMSULOSIN
  9. DETRUSITOL [Concomitant]
     Active Substance: TOLTERODINE TARTRATE

REACTIONS (10)
  - Swelling [Recovering/Resolving]
  - Micturition urgency [Recovering/Resolving]
  - Arthritis [Recovering/Resolving]
  - Pollakiuria [Recovering/Resolving]
  - Arthralgia [Recovering/Resolving]
  - Hyperhidrosis [Recovering/Resolving]
  - Feeling hot [Recovering/Resolving]
  - Pain [Recovering/Resolving]
  - Back pain [Recovering/Resolving]
  - Weight decreased [Unknown]

NARRATIVE: CASE EVENT DATE: 20160517
